FAERS Safety Report 12291691 (Version 1)
Quarter: 2016Q2

REPORT INFORMATION
  Report Type: Report from Study
  Country: US (occurrence: US)
  Receive Date: 20160421
  Receipt Date: 20160421
  Transmission Date: 20160815
  Serious: No
  Sender: FDA-Public Use
  Company Number: US-AMGEN-USASP2016021026

PATIENT
  Age: 78 Year
  Sex: Female

DRUGS (1)
  1. REPATHA [Suspect]
     Active Substance: EVOLOCUMAB
     Indication: PRODUCT USED FOR UNKNOWN INDICATION
     Dosage: UNK
     Route: 065
     Dates: start: 201602

REACTIONS (6)
  - Pain in extremity [Recovered/Resolved]
  - Muscle spasms [Unknown]
  - Fatigue [Unknown]
  - Dyspnoea [Unknown]
  - Feeling hot [Recovered/Resolved]
  - Peripheral swelling [Recovered/Resolved]
